FAERS Safety Report 5377484-8 (Version None)
Quarter: 2007Q3

REPORT INFORMATION
  Report Type: 
  Country: None (occurrence: None)
  Receive Date: 20070703
  Receipt Date: 20070621
  Transmission Date: 20080115
  Serious: Yes (Hospitalization)
  Sender: FDA-Public Use
  Company Number: FR-ROCHE-503940

PATIENT
  Age: 57 Year
  Sex: Female

DRUGS (14)
  1. ROCEPHIN [Suspect]
     Indication: DERMATOSIS
     Dosage: ONE DOSE DAILY.
     Route: 042
     Dates: start: 20061011, end: 20061013
  2. GLIBENESE [Concomitant]
  3. INSULATARD [Concomitant]
  4. HUMALOG [Concomitant]
  5. DETENSIEL [Concomitant]
  6. LASIX [Concomitant]
  7. RIVOTRIL [Concomitant]
  8. PAROXETINE HCL [Concomitant]
  9. ASPIRIN [Concomitant]
  10. BEFIZAL [Concomitant]
  11. CIFLOX [Concomitant]
  12. CALCIPARINE [Concomitant]
  13. BRICANYL [Concomitant]
  14. ATROVENT [Concomitant]

REACTIONS (2)
  - HYPERSENSITIVITY [None]
  - TOXIC SKIN ERUPTION [None]
